FAERS Safety Report 13624927 (Version 3)
Quarter: 2017Q3

REPORT INFORMATION
  Report Type: Spontaneous
  Country: IQ (occurrence: IQ)
  Receive Date: 20170608
  Receipt Date: 20170817
  Transmission Date: 20171127
  Serious: Yes (Other)
  Sender: FDA-Public Use
  Company Number: IQ-SUN PHARMACEUTICAL INDUSTRIES LTD-2017RR-142571

PATIENT

DRUGS (1)
  1. TRAMADOL. [Suspect]
     Active Substance: TRAMADOL
     Indication: PRODUCT USED FOR UNKNOWN INDICATION
     Dosage: 200 MG X 6 TABLETS
     Route: 048

REACTIONS (3)
  - Hypoglycaemia [Unknown]
  - Seizure [Unknown]
  - Toxicity to various agents [Unknown]
